FAERS Safety Report 15117329 (Version 1)
Quarter: 2018Q3

REPORT INFORMATION
  Report Type: Spontaneous
  Country: US (occurrence: US)
  Receive Date: 20180612
  Receipt Date: 20180612
  Transmission Date: 20181010
  Serious: Yes (Other)
  Sender: FDA-Public Use
  Company Number: None

PATIENT
  Age: 81 Year
  Sex: Female

DRUGS (1)
  1. BLINK TEARS [Suspect]
     Active Substance: POLYETHYLENE GLYCOL 400
     Indication: EYE IRRITATION
     Dates: start: 20180608, end: 20180608

REACTIONS (2)
  - Eye disorder [None]
  - Visual impairment [None]

NARRATIVE: CASE EVENT DATE: 20180608
